FAERS Safety Report 10192257 (Version 2)
Quarter: 2014Q2

REPORT INFORMATION
  Report Type: Spontaneous
  Country: JP (occurrence: JP)
  Receive Date: 20140523
  Receipt Date: 20140523
  Transmission Date: 20141212
  Serious: Yes (Hospitalization)
  Sender: FDA-Public Use
  Company Number: JP-BAYER-2013-079124

PATIENT
  Age: 57 Year
  Sex: Male
  Weight: 42 kg

DRUGS (3)
  1. NEXAVAR [Suspect]
     Indication: HEPATOCELLULAR CARCINOMA
     Dosage: DAILY DOSE 400 MG
     Route: 048
  2. NEXAVAR [Suspect]
     Indication: HEPATOCELLULAR CARCINOMA
     Dosage: DAILY DOSE 800 MG
     Route: 048
  3. NEXAVAR [Suspect]
     Indication: HEPATOCELLULAR CARCINOMA
     Dosage: DAILY DOSE 400 MG
     Route: 048

REACTIONS (10)
  - Pleural effusion [None]
  - Metastases to lymph nodes [None]
  - Metastases to liver [None]
  - Metastases to abdominal wall [None]
  - Ascites [None]
  - Abdominal pain [None]
  - Plantar erythema [None]
  - Pain in extremity [None]
  - Malaise [None]
  - Decreased appetite [None]
